FAERS Safety Report 9139976 (Version 2)
Quarter: 2013Q1

REPORT INFORMATION
  Report Type: Spontaneous
  Country: JP (occurrence: JP)
  Receive Date: 20130305
  Receipt Date: 20130326
  Transmission Date: 20140127
  Serious: Yes (Other)
  Sender: FDA-Public Use
  Company Number: JP-PFIZER INC-2013075337

PATIENT
  Age: 97 Year
  Sex: Female

DRUGS (3)
  1. LYRICA [Suspect]
     Dosage: 50 MG, 1X/DAY BEFORE SLEEP
     Route: 048
  2. SPIRIVA [Concomitant]
     Indication: DYSPNOEA
  3. MEPTIN [Concomitant]
     Indication: DYSPNOEA

REACTIONS (4)
  - Chronic obstructive pulmonary disease [Unknown]
  - Dyspnoea [Unknown]
  - Decreased appetite [Unknown]
  - Asthenia [Unknown]
